FAERS Safety Report 22304434 (Version 1)
Quarter: 2023Q2

REPORT INFORMATION
  Report Type: Spontaneous
  Country: US (occurrence: None)
  Receive Date: 20230509
  Receipt Date: 20230509
  Transmission Date: 20230722
  Serious: No
  Sender: FDA-Public Use
  Company Number: None

PATIENT
  Sex: Female
  Weight: 59.85 kg

DRUGS (6)
  1. DEXTROAMPHET SACCHARAT, AMPHET ASPARTATE, DEXTROAMPHET SULFATE AND AMP [Suspect]
     Active Substance: AMPHETAMINE ASPARTATE\AMPHETAMINE ASPARTATE MONOHYDRATE\AMPHETAMINE SULFATE\DEXTROAMPHETAMINE SACCHA
     Indication: Attention deficit hyperactivity disorder
     Dosage: OTHER QUANTITY : 30 CAPSULE(S);?FREQUENCY : DAILY;?
     Route: 048
     Dates: start: 20220201
  2. BUPROPION HCL XL 300 [Concomitant]
  3. DENTA 5000 PLUS CREAM [Concomitant]
  4. HYDROXYZINE HCL 25 MG TABLET [Concomitant]
  5. Albuterol sulfate (ALBUTEROL HFA) 90 mcg/actuation HFAA inhaler [Concomitant]
  6. Health By Habit--Woman^s multi Vitamin [Concomitant]

REACTIONS (4)
  - Drug ineffective [None]
  - Therapy interrupted [None]
  - Treatment noncompliance [None]
  - Anxiety [None]
